FAERS Safety Report 18882654 (Version 1)
Quarter: 2021Q1

REPORT INFORMATION
  Report Type: Report from Study
  Country: ES (occurrence: ES)
  Receive Date: 20210212
  Receipt Date: 20210212
  Transmission Date: 20210420
  Serious: Yes (Disabling)
  Sender: FDA-Public Use
  Company Number: ES-REGENERON PHARMACEUTICALS, INC.-2021-21258

PATIENT

DRUGS (11)
  1. EYLEA [Suspect]
     Active Substance: AFLIBERCEPT
     Indication: NEOVASCULAR AGE-RELATED MACULAR DEGENERATION
     Dosage: 50 MICROLITRE, ONCE INTO LEFT EYE
     Route: 031
     Dates: start: 20191107, end: 20191107
  2. EYLEA [Suspect]
     Active Substance: AFLIBERCEPT
     Dosage: 50 MICROLITRE, ONCE INTO LEFT EYE
     Route: 031
     Dates: start: 20201116, end: 20201116
  3. EYLEA [Suspect]
     Active Substance: AFLIBERCEPT
     Dosage: 50 MICROLITRE, ONCE INTO LEFT EYE
     Route: 031
     Dates: start: 20191205, end: 20191205
  4. EYLEA [Suspect]
     Active Substance: AFLIBERCEPT
     Dosage: 50 MICROLITRE, ONCE INTO LEFT EYE
     Route: 031
     Dates: start: 20200102, end: 20200102
  5. EYLEA [Suspect]
     Active Substance: AFLIBERCEPT
     Dosage: 50 MICROLITRE, ONCE INTO LEFT EYE
     Route: 031
     Dates: start: 20200601, end: 20200601
  6. SIMVASTATINA [Concomitant]
     Active Substance: SIMVASTATIN
     Indication: HYPERTENSION
     Dosage: 20 MG, QD
     Dates: start: 201910
  7. EYLEA [Suspect]
     Active Substance: AFLIBERCEPT
     Dosage: 50 MICROLITRE, ONCE INTO LEFT EYE
     Route: 031
     Dates: start: 20200221, end: 20200221
  8. EYLEA [Suspect]
     Active Substance: AFLIBERCEPT
     Dosage: 50 MICROLITRE, ONCE INTO LEFT EYE
     Route: 031
     Dates: start: 20200629, end: 20200629
  9. EYLEA [Suspect]
     Active Substance: AFLIBERCEPT
     Dosage: 50 MICROLITRE, ONCE INTO LEFT EYE
     Route: 031
     Dates: start: 20200727, end: 20200727
  10. EYLEA [Suspect]
     Active Substance: AFLIBERCEPT
     Dosage: 50 MICROLITRE, ONCE INTO LEFT EYE
     Route: 031
     Dates: start: 20210111, end: 20210111
  11. EYLEA [Suspect]
     Active Substance: AFLIBERCEPT
     Dosage: 50 MICROLITRE, ONCE INTO LEFT EYE
     Route: 031
     Dates: start: 20200921, end: 20200921

REACTIONS (1)
  - Vitreous haemorrhage [Recovered/Resolved]

NARRATIVE: CASE EVENT DATE: 20200226
